FAERS Safety Report 7485111-9 (Version None)
Quarter: 2011Q2

REPORT INFORMATION
  Report Type: 
  Country: None (occurrence: None)
  Receive Date: 20110517
  Receipt Date: 20100428
  Transmission Date: 20111010
  Serious: No
  Sender: FDA-Public Use
  Company Number: US-NOVEN-ALL1-2010-02498

PATIENT

DRUGS (1)
  1. DAYTRANA [Suspect]
     Dosage: 15 MG, MONDAY THRU FRIDAYS, ON SCHOOL DAYS ONLY
     Route: 062
     Dates: start: 20100402

REACTIONS (2)
  - INCREASED APPETITE [None]
  - DECREASED APPETITE [None]
